FAERS Safety Report 24823640 (Version 2)
Quarter: 2025Q1

REPORT INFORMATION
  Report Type: Spontaneous
  Country: US (occurrence: US)
  Receive Date: 20250109
  Receipt Date: 20250117
  Transmission Date: 20250409
  Serious: No
  Sender: NOVARTIS
  Company Number: US-002147023-NVSC2025US003161

PATIENT
  Sex: Female

DRUGS (2)
  1. MEKINIST [Suspect]
     Active Substance: TRAMETINIB DIMETHYL SULFOXIDE
     Indication: Thyroid cancer
     Dosage: 40 ML, QD
     Route: 048
     Dates: start: 202411
  2. TAFINLAR [Suspect]
     Active Substance: DABRAFENIB MESYLATE
     Indication: Thyroid cancer
     Dosage: STIR IN10 ML OF WATER UNTIL FULLY DISSOLVED (3MINUTES)
     Route: 048
     Dates: start: 202411

REACTIONS (3)
  - Acne [Unknown]
  - Visual impairment [Unknown]
  - Retching [Unknown]
